FAERS Safety Report 10223110 (Version 2)
Quarter: 2014Q2

REPORT INFORMATION
  Report Type: Spontaneous
  Country: IT (occurrence: IT)
  Receive Date: 20140607
  Receipt Date: 20140607
  Transmission Date: 20141212
  Serious: Yes (Other)
  Sender: FDA-Public Use
  Company Number: PHHY2014IT047646

PATIENT
  Age: 58 Year
  Sex: Male

DRUGS (4)
  1. ENALAPRIL [Suspect]
     Indication: DRUG ABUSE
     Dosage: 600 MG, ONCE/SINGLE
     Route: 048
     Dates: start: 20130712, end: 20130712
  2. MINIAS [Suspect]
     Indication: DRUG ABUSE
     Dosage: 40 MG, ONCE/SINGLE
     Route: 048
     Dates: start: 20130712, end: 20130712
  3. NORVASC [Suspect]
     Indication: DRUG ABUSE
     Dosage: 200 MG, ONCE/SINGLE
     Route: 048
     Dates: start: 20130712, end: 20130712
  4. MUSCORIL [Suspect]
     Indication: DRUG ABUSE
     Dosage: 80 MG, ONCE/SINGLE
     Route: 048
     Dates: start: 20130712, end: 20130712

REACTIONS (3)
  - Depressed level of consciousness [Recovering/Resolving]
  - Intentional self-injury [Recovering/Resolving]
  - Headache [Recovering/Resolving]
